FAERS Safety Report 12653081 (Version 2)
Quarter: 2017Q1

REPORT INFORMATION
  Report Type: Spontaneous
  Country: US (occurrence: US)
  Receive Date: 20160815
  Receipt Date: 20170113
  Transmission Date: 20170428
  Serious: No
  Sender: FDA-Public Use
  Company Number: US-DEPOMED, INC.-US-2016DEP009310

PATIENT

DRUGS (1)
  1. CAMBIA [Suspect]
     Active Substance: DICLOFENAC POTASSIUM
     Indication: MIGRAINE
     Dosage: 2 DF, UNK
     Route: 048

REACTIONS (6)
  - Ill-defined disorder [Unknown]
  - Product difficult to swallow [Unknown]
  - Malaise [Unknown]
  - Drug ineffective [Unknown]
  - Incorrect dose administered [Unknown]
  - Piloerection [Unknown]
